FAERS Safety Report 9191405 (Version 1)
Quarter: 2013Q1

REPORT INFORMATION
  Report Type: Spontaneous
  Country: BR (occurrence: BR)
  Receive Date: 20130326
  Receipt Date: 20130326
  Transmission Date: 20140127
  Serious: Yes (Life-Threatening, Hospitalization, Other)
  Sender: FDA-Public Use
  Company Number: BR-JNJFOC-20130308902

PATIENT
  Age: 25 Year
  Sex: Male

DRUGS (4)
  1. RISPERDAL [Suspect]
     Indication: BIPOLAR DISORDER
     Route: 065
  2. RISPERDAL [Suspect]
     Indication: BIPOLAR DISORDER
     Route: 065
  3. DIVALPROEX SODIUM [Suspect]
     Indication: BIPOLAR DISORDER
     Route: 065
  4. DIVALPROEX SODIUM [Suspect]
     Indication: BIPOLAR DISORDER
     Route: 065

REACTIONS (5)
  - Suicide attempt [Unknown]
  - Depression [Unknown]
  - Morbid thoughts [Unknown]
  - Weight increased [Unknown]
  - Blood prolactin increased [Unknown]
